FAERS Safety Report 7136967-0 (Version None)
Quarter: 2010Q4

REPORT INFORMATION
  Report Type: 
  Country: None (occurrence: None)
  Receive Date: 20101115
  Receipt Date: 20101103
  Transmission Date: 20110411
  Serious: Yes (Other)
  Sender: FDA-Public Use
  Company Number: CA-145100

PATIENT
  Sex: Female

DRUGS (3)
  1. WINRHO SDF [Suspect]
     Dosage: 300 UG, 300 UG
     Dates: start: 19980909, end: 19980909
  2. WINRHO SDF [Suspect]
     Dosage: 300 UG, 300 UG
     Dates: start: 19991015, end: 19991015
  3. WINRHO [Suspect]

REACTIONS (1)
  - HEPATITIS C [None]
